FAERS Safety Report 19516898 (Version 1)
Quarter: 2021Q3

REPORT INFORMATION
  Report Type: Spontaneous
  Country: US (occurrence: US)
  Receive Date: 20210711
  Receipt Date: 20210711
  Transmission Date: 20211014
  Serious: No
  Sender: FDA-Public Use
  Company Number: US-SA-2021SA225230

PATIENT
  Age: 16 Year
  Sex: Male

DRUGS (8)
  1. DUPIXENT [Suspect]
     Active Substance: DUPILUMAB
     Indication: DERMATITIS ATOPIC
     Dosage: 600 MG, 1X
     Route: 058
     Dates: start: 20210624, end: 20210624
  2. OLOPATADINE. [Concomitant]
     Active Substance: OLOPATADINE
  3. MOMETASONE [Concomitant]
     Active Substance: MOMETASONE
  4. NASONEX [Concomitant]
     Active Substance: MOMETASONE FUROATE
  5. CETRIZINE [Concomitant]
     Active Substance: CETIRIZINE HYDROCHLORIDE
  6. HYDROXYZINE HCL [Concomitant]
     Active Substance: HYDROXYZINE HYDROCHLORIDE
  7. CLOTRIMAZOLE. [Concomitant]
     Active Substance: CLOTRIMAZOLE
  8. EUCRISA [Concomitant]
     Active Substance: CRISABOROLE

REACTIONS (2)
  - Eye irritation [Not Recovered/Not Resolved]
  - Product use issue [Unknown]

NARRATIVE: CASE EVENT DATE: 20210624
